FAERS Safety Report 5074138-2 (Version None)
Quarter: 2006Q3

REPORT INFORMATION
  Report Type: 
  Country: None (occurrence: None)
  Receive Date: 20060802
  Receipt Date: 20060721
  Transmission Date: 20061208
  Serious: Yes (Hospitalization)
  Sender: FDA-Public Use
  Company Number: 2006091328

PATIENT
  Age: 77 Year
  Sex: Female
  Weight: 61.2356 kg

DRUGS (10)
  1. HALCION [Suspect]
     Indication: INSOMNIA
     Dosage: 0.125 MG (0.125 MG, 1 IN 1 D), ORAL
     Route: 048
     Dates: start: 20040101, end: 20060624
  2. LUNESTA [Suspect]
     Indication: INSOMNIA
     Dosage: 1 MG (1 MG, 1 IN 1 D), ORAL
     Route: 048
     Dates: start: 20060601, end: 20060625
  3. AVAPRO [Concomitant]
  4. TIKOSYN [Concomitant]
  5. VYTORIN [Concomitant]
  6. PREVACID [Concomitant]
  7. IMDUR [Concomitant]
  8. LIBRAX (CHLORDIAZEPOXIDE HYDROCHLORIDE) [Concomitant]
  9. METOPROLOL TARTRATE [Concomitant]
  10. RESTORIL [Concomitant]

REACTIONS (5)
  - ATRIAL FIBRILLATION [None]
  - BLOOD SODIUM DECREASED [None]
  - HEADACHE [None]
  - HEART RATE DECREASED [None]
  - LOSS OF CONSCIOUSNESS [None]
